FAERS Safety Report 8432280-X (Version None)
Quarter: 2012Q2

REPORT INFORMATION
  Report Type: 
  Country: None (occurrence: None)
  Receive Date: 20120613
  Receipt Date: 20120607
  Transmission Date: 20120825
  Serious: Yes (Other)
  Sender: FDA-Public Use
  Company Number: PHHY2009JP12233

PATIENT
  Sex: Male

DRUGS (12)
  1. AMARYL [Concomitant]
     Dosage: 3 MG, UNK
     Route: 048
     Dates: start: 20080605
  2. LASIX [Concomitant]
     Indication: PROPHYLAXIS
     Dosage: 40 MG, UNK
     Route: 048
     Dates: start: 20090413
  3. AMARYL [Concomitant]
     Dosage: 5 MG/DAY
     Dates: start: 20100318
  4. NIPOLAZIN [Concomitant]
     Indication: PROPHYLAXIS
     Dosage: 6 MG, UNK
     Dates: start: 20080702
  5. BASEN [Concomitant]
     Dosage: 0.9 MG, UNK
     Route: 048
     Dates: start: 20080605
  6. CARVEDILOL [Concomitant]
     Dosage: 5 MG, UNK
     Route: 048
     Dates: start: 20080605
  7. AMARYL [Concomitant]
     Dosage: 4 MG, UNK
  8. ACTOS [Concomitant]
     Dosage: 15 MG, UNK
     Route: 048
     Dates: start: 20081128
  9. TASIGNA [Suspect]
     Indication: CHRONIC MYELOID LEUKAEMIA
     Dosage: 800 MG, DAILY
     Route: 048
     Dates: start: 20090317, end: 20090326
  10. DIOVAN [Concomitant]
     Dosage: 80 MG, UNK
     Route: 048
     Dates: start: 20080605
  11. URSO 250 [Concomitant]
     Indication: PROPHYLAXIS
     Dosage: 600 MG, UNK
     Route: 048
     Dates: start: 20080826
  12. GASTROM [Concomitant]
     Indication: PROPHYLAXIS
     Dosage: 3 G, UNK
     Dates: start: 20090419

REACTIONS (12)
  - RENAL DISORDER [None]
  - BLOOD URIC ACID ABNORMAL [None]
  - PLEURAL EFFUSION [None]
  - DYSPNOEA [None]
  - TUMOUR LYSIS SYNDROME [None]
  - CARDIAC DISORDER [None]
  - HEPATIC FUNCTION ABNORMAL [None]
  - ATRIAL FIBRILLATION [None]
  - HYPERGLYCAEMIA [None]
  - PLATELET COUNT DECREASED [None]
  - CARDIAC FAILURE [None]
  - ANAEMIA [None]
